FAERS Safety Report 25300210 (Version 1)
Quarter: 2025Q2

REPORT INFORMATION
  Report Type: Spontaneous
  Country: ES (occurrence: ES)
  Receive Date: 20250512
  Receipt Date: 20250512
  Transmission Date: 20250717
  Serious: Yes (Other)
  Sender: MYLAN
  Company Number: ES-MYLANLABS-2025M1039629

PATIENT
  Sex: Male

DRUGS (24)
  1. LEVETIRACETAM [Suspect]
     Active Substance: LEVETIRACETAM
     Indication: Generalised tonic-clonic seizure
  2. LEVETIRACETAM [Suspect]
     Active Substance: LEVETIRACETAM
     Route: 065
  3. LEVETIRACETAM [Suspect]
     Active Substance: LEVETIRACETAM
     Route: 065
  4. LEVETIRACETAM [Suspect]
     Active Substance: LEVETIRACETAM
  5. TOPIRAMATE [Suspect]
     Active Substance: TOPIRAMATE
     Indication: Generalised tonic-clonic seizure
  6. TOPIRAMATE [Suspect]
     Active Substance: TOPIRAMATE
     Route: 065
  7. TOPIRAMATE [Suspect]
     Active Substance: TOPIRAMATE
     Route: 065
  8. TOPIRAMATE [Suspect]
     Active Substance: TOPIRAMATE
  9. VALPROIC ACID [Suspect]
     Active Substance: VALPROIC ACID
     Indication: Generalised tonic-clonic seizure
  10. VALPROIC ACID [Suspect]
     Active Substance: VALPROIC ACID
     Route: 065
  11. VALPROIC ACID [Suspect]
     Active Substance: VALPROIC ACID
     Route: 065
  12. VALPROIC ACID [Suspect]
     Active Substance: VALPROIC ACID
  13. LEVOCARNITINE [Suspect]
     Active Substance: LEVOCARNITINE
     Indication: Generalised tonic-clonic seizure
  14. LEVOCARNITINE [Suspect]
     Active Substance: LEVOCARNITINE
     Route: 065
  15. LEVOCARNITINE [Suspect]
     Active Substance: LEVOCARNITINE
     Route: 065
  16. LEVOCARNITINE [Suspect]
     Active Substance: LEVOCARNITINE
  17. VIGABATRIN [Suspect]
     Active Substance: VIGABATRIN
     Indication: Generalised tonic-clonic seizure
  18. VIGABATRIN [Suspect]
     Active Substance: VIGABATRIN
     Route: 065
  19. VIGABATRIN [Suspect]
     Active Substance: VIGABATRIN
     Route: 065
  20. VIGABATRIN [Suspect]
     Active Substance: VIGABATRIN
  21. CLOBAZAM [Suspect]
     Active Substance: CLOBAZAM
     Indication: Generalised tonic-clonic seizure
  22. CLOBAZAM [Suspect]
     Active Substance: CLOBAZAM
     Route: 065
  23. CLOBAZAM [Suspect]
     Active Substance: CLOBAZAM
     Route: 065
  24. CLOBAZAM [Suspect]
     Active Substance: CLOBAZAM

REACTIONS (1)
  - Drug ineffective [Unknown]
